FAERS Safety Report 17712212 (Version 1)
Quarter: 2020Q2

REPORT INFORMATION
  Report Type: Spontaneous
  Country: DE (occurrence: DE)
  Receive Date: 20200427
  Receipt Date: 20200427
  Transmission Date: 20200714
  Serious: Yes (Life-Threatening, Hospitalization)
  Sender: FDA-Public Use
  Company Number: PHHY2018DE194319

PATIENT
  Age: 67 Year
  Sex: Female
  Weight: 48 kg

DRUGS (33)
  1. FLUOROURACIL. [Suspect]
     Active Substance: FLUOROURACIL
     Indication: COLORECTAL CANCER METASTATIC
     Dosage: 2217 MG, UNK
     Route: 042
  2. FOLINIC ACID [Suspect]
     Active Substance: LEUCOVORIN
     Indication: COLORECTAL CANCER METASTATIC
     Dosage: 381 MG
     Route: 065
  3. DEXAM [Concomitant]
     Indication: NAUSEA
     Dosage: 8 ML
     Route: 042
  4. DOXYCYCLIN-RATIOPHARM [Concomitant]
     Indication: RASH
     Dosage: 50 MILLIGRAM, QD
     Route: 048
     Dates: start: 20180620
  5. DOXYDERMA [Concomitant]
     Dosage: 2.5 MILLIGRAM, AS NECESSARY
     Route: 061
     Dates: start: 20180620
  6. FOLINIC ACID [Suspect]
     Active Substance: LEUCOVORIN
     Dosage: 381 MG
     Route: 065
     Dates: start: 20180620
  7. IRINOTECAN [Suspect]
     Active Substance: IRINOTECAN
     Indication: COLORECTAL CANCER METASTATIC
     Dosage: 166 MG, UNK
     Route: 065
  8. VECTIBIX [Suspect]
     Active Substance: PANITUMUMAB
     Dosage: 288 MG, UNK
     Route: 042
  9. ONDANSETRON B. BRAUN [Concomitant]
     Dosage: 8 MILLIGRAM, AS NECESSARY
     Route: 048
     Dates: start: 20180620
  10. DOXYDERMA [Concomitant]
     Indication: RASH
     Dosage: 50 MG, PRN (AS NECESSARY)
     Route: 061
  11. CALCIUMACETAT-NEFRO [Concomitant]
     Indication: NEPHROPATHY
     Dosage: 2000 MG, QD (500 MG, QID)
     Route: 048
     Dates: start: 20000101
  12. ONDANSETRON B. BRAUN [Concomitant]
     Indication: NAUSEA
     Dosage: 8 MG, PRN (AS NECESSARY)
     Route: 048
  13. ONDANSETRON BETA [Concomitant]
     Dosage: 8 MILLIGRAM, PC
     Route: 042
     Dates: start: 20180620
  14. LOPERAMIDE RATIOPHARM [Concomitant]
     Active Substance: LOPERAMIDE HYDROCHLORIDE
     Indication: DIARRHOEA
     Dosage: 10 MG, PRN (AS NECESSARY)
     Route: 048
  15. FLUOROURACIL. [Suspect]
     Active Substance: FLUOROURACIL
     Dosage: 381 MG, UNK
     Route: 042
  16. FOLINIC ACID [Suspect]
     Active Substance: LEUCOVORIN
     Dosage: 369 MG
     Route: 065
  17. IRINOTECAN [Suspect]
     Active Substance: IRINOTECAN
     Indication: OFF LABEL USE
     Dosage: 171 MG, UNK
     Route: 065
  18. IRINOTECAN [Suspect]
     Active Substance: IRINOTECAN
     Dosage: 171 MILLIGRAM, UNK
     Route: 065
     Dates: start: 20180620
  19. DEXAM [Concomitant]
     Dosage: 8 ML
     Route: 065
     Dates: start: 20180620
  20. ONDANSETRON BETA [Concomitant]
     Indication: NAUSEA
     Dosage: 8 MILLIGRAM, PC
     Route: 042
  21. LOPERAMIDE RATIOPHARM [Concomitant]
     Active Substance: LOPERAMIDE HYDROCHLORIDE
     Dosage: 10 MILLIGRAM, AS NECESSARY
     Route: 048
     Dates: start: 20180620
  22. ATROPINUM SULFURICUM [Concomitant]
     Indication: MUSCLE SPASMS
     Dosage: 0.25 MG, UNK (PC)
     Route: 058
  23. EMEND [Concomitant]
     Active Substance: APREPITANT
     Dosage: 125 MG
     Route: 048
     Dates: start: 20180704
  24. BICANORM [Concomitant]
     Active Substance: SODIUM BICARBONATE
     Indication: NEPHROPATHY
     Dosage: 5 MILLIGRAM, QD
     Route: 048
     Dates: start: 20000101
  25. ATROPINUM SULFURICUM [Concomitant]
     Dosage: 0.25 MILLIGRAM, PC
     Route: 058
     Dates: start: 20180620
  26. FLUOROURACIL. [Suspect]
     Active Substance: FLUOROURACIL
     Dosage: 369 MG, UNK
     Route: 042
  27. CALCIUMACETAT-NEFRO [Concomitant]
     Dosage: 500 MG, QID
     Route: 048
     Dates: start: 20000101
  28. EMEND [Concomitant]
     Active Substance: APREPITANT
     Indication: NAUSEA
     Dosage: 125 MG
     Route: 048
  29. FLUOROURACIL. [Suspect]
     Active Substance: FLUOROURACIL
     Dosage: 2289 MG, UNK
     Route: 042
  30. VECTIBIX [Suspect]
     Active Substance: PANITUMUMAB
     Dosage: 288 MILLIGRAM, UNK
     Route: 042
     Dates: start: 20180919
  31. FLUOROURACIL. [Suspect]
     Active Substance: FLUOROURACIL
     Dosage: 2289 MILLIGRAM, UNK
     Route: 042
     Dates: start: 20180620
  32. FOLINIC ACID [Suspect]
     Active Substance: LEUCOVORIN
     Dosage: 369 MG
     Route: 065
     Dates: start: 20180815
  33. VECTIBIX [Suspect]
     Active Substance: PANITUMUMAB
     Indication: COLORECTAL CANCER METASTATIC
     Dosage: 270 MG, UNK
     Route: 042

REACTIONS (1)
  - Mental impairment [Not Recovered/Not Resolved]

NARRATIVE: CASE EVENT DATE: 20180924
